FAERS Safety Report 9750138 (Version 2)
Quarter: 2013Q4

REPORT INFORMATION
  Report Type: Report from Study
  Country: US (occurrence: US)
  Receive Date: 20131212
  Receipt Date: 20131212
  Transmission Date: 20140711
  Serious: Yes (Other)
  Sender: FDA-Public Use
  Company Number: US-GILEAD-US-CVT-090260

PATIENT
  Age: 52 Year
  Sex: Female
  Weight: 62 kg

DRUGS (5)
  1. RANOLAZINE [Suspect]
     Indication: ANGINA PECTORIS
     Route: 048
     Dates: start: 20090501, end: 20090502
  2. PLAQUENIL                          /00072602/ [Concomitant]
     Indication: RHEUMATOID ARTHRITIS
     Route: 048
     Dates: start: 1981
  3. LOPRESSOR [Concomitant]
     Indication: HYPERTENSION
     Route: 048
     Dates: start: 2004
  4. SYNTHROID [Concomitant]
     Indication: HYPOTHYROIDISM
     Route: 048
     Dates: start: 2002
  5. ASPIRIN                            /00002701/ [Concomitant]
     Indication: ANTIPLATELET THERAPY
     Route: 048
     Dates: start: 20090306

REACTIONS (2)
  - Dizziness [Recovered/Resolved]
  - Chest pain [Recovered/Resolved]
